FAERS Safety Report 21642472 (Version 2)
Quarter: 2022Q4

REPORT INFORMATION
  Report Type: Spontaneous
  Country: TW (occurrence: TW)
  Receive Date: 20221125
  Receipt Date: 20221208
  Transmission Date: 20230113
  Serious: Yes (Hospitalization, Other)
  Sender: FDA-Public Use
  Company Number: TW-Accord-287946

PATIENT
  Age: 28 Year
  Sex: Male

DRUGS (9)
  1. MYCOPHENOLATE MOFETIL [Suspect]
     Active Substance: MYCOPHENOLATE MOFETIL
     Indication: Premedication
     Route: 048
  2. TACROLIMUS [Concomitant]
     Active Substance: TACROLIMUS
     Indication: Premedication
     Dosage: THE PRESCRIBED DOSE OF FK-506 WAS INCREMENTAL INITIALLY
     Route: 048
  3. CARVEDILOL [Concomitant]
     Active Substance: CARVEDILOL
  4. DOXAZOSIN [Concomitant]
     Active Substance: DOXAZOSIN MESYLATE
  5. PREDNISOLONE [Concomitant]
     Active Substance: PREDNISOLONE
  6. PANTOPRAZOLE [Concomitant]
     Active Substance: PANTOPRAZOLE
  7. CEFTRIAXONE [Concomitant]
     Active Substance: CEFTRIAXONE
  8. AMLODIPINE [Concomitant]
     Active Substance: AMLODIPINE BESYLATE
  9. TACROLIMUS [Concomitant]
     Active Substance: TACROLIMUS
     Indication: Premedication
     Dosage: THE PRESCRIBED DOSE OF FK-506 WAS INCREMENTAL INITIALLY
     Route: 048

REACTIONS (3)
  - Liver injury [Recovered/Resolved]
  - Hepatocellular injury [Recovered/Resolved]
  - Hepatitis acute [Recovered/Resolved]
